FAERS Safety Report 11525097 (Version 3)
Quarter: 2015Q4

REPORT INFORMATION
  Report Type: Spontaneous
  Country: FI (occurrence: FI)
  Receive Date: 20150918
  Receipt Date: 20151026
  Transmission Date: 20160304
  Serious: Yes (Hospitalization, Other)
  Sender: FDA-Public Use
  Company Number: FI-ROCHE-1633174

PATIENT
  Age: 64 Year
  Sex: Female

DRUGS (17)
  1. HERCEPTIN [Suspect]
     Active Substance: TRASTUZUMAB
     Dosage: MAINTENANCE DOSE
     Route: 042
     Dates: start: 20140822, end: 20141007
  2. TAXOTERE [Concomitant]
     Active Substance: DOCETAXEL
     Route: 042
     Dates: start: 20140822, end: 20141007
  3. LETROZOLE. [Concomitant]
     Active Substance: LETROZOLE
     Indication: HER-2 POSITIVE BREAST CANCER
     Route: 065
     Dates: end: 20140731
  4. OXYCONTIN [Concomitant]
     Active Substance: OXYCODONE HYDROCHLORIDE
     Indication: PAIN
     Route: 065
  5. OXANEST [Concomitant]
     Active Substance: OXYCODONE HYDROCHLORIDE
     Dosage: 1-4 TIMES A DAY AS NEEDED
     Route: 058
  6. PERJETA [Suspect]
     Active Substance: PERTUZUMAB
     Indication: HER-2 POSITIVE BREAST CANCER
     Dosage: STARTING DOSE
     Route: 042
     Dates: start: 20140822
  7. TAXOTERE [Concomitant]
     Active Substance: DOCETAXEL
     Indication: HER-2 POSITIVE BREAST CANCER
     Dosage: TOTALLY THREE CYCLES
     Route: 042
     Dates: start: 20130920, end: 20131106
  8. MICARDIS PLUS [Concomitant]
     Active Substance: HYDROCHLOROTHIAZIDE\TELMISARTAN
     Dosage: 40/12.5 MG
     Route: 065
  9. PLAVIX [Concomitant]
     Active Substance: CLOPIDOGREL BISULFATE
     Route: 065
  10. PERJETA [Suspect]
     Active Substance: PERTUZUMAB
     Dosage: MAINTENANCE DOSE
     Route: 042
     Dates: end: 20141007
  11. KADCYLA [Suspect]
     Active Substance: ADO-TRASTUZUMAB EMTANSINE
     Indication: HER-2 POSITIVE BREAST CANCER
     Dosage: TOTALLY 13 CYCLES
     Route: 065
     Dates: start: 20141029, end: 20150805
  12. HERCEPTIN [Suspect]
     Active Substance: TRASTUZUMAB
     Route: 065
     Dates: end: 20140731
  13. LYRICA [Concomitant]
     Active Substance: PREGABALIN
     Route: 065
  14. HERCEPTIN [Suspect]
     Active Substance: TRASTUZUMAB
     Indication: HER-2 POSITIVE BREAST CANCER
     Route: 042
     Dates: start: 20130920
  15. ATORVASTATIN [Concomitant]
     Active Substance: ATORVASTATIN
     Route: 065
  16. SOMAC [Concomitant]
     Active Substance: PANTOPRAZOLE SODIUM
     Route: 065
  17. PRIMASPAN [Concomitant]
     Route: 065

REACTIONS (11)
  - Aortic valve prolapse [Unknown]
  - Balance disorder [Unknown]
  - General physical health deterioration [Not Recovered/Not Resolved]
  - Deep vein thrombosis [Unknown]
  - Staphylococcal sepsis [Unknown]
  - Osteonecrosis [Unknown]
  - Cerebral infarction [Recovered/Resolved]
  - Carotid endarterectomy [Recovered/Resolved]
  - Arthritis infective [Unknown]
  - Neoplasm malignant [Unknown]
  - Aphasia [Unknown]

NARRATIVE: CASE EVENT DATE: 2014
